FAERS Safety Report 4349362-4 (Version None)
Quarter: 2004Q2

REPORT INFORMATION
  Report Type: 
  Country: None (occurrence: None)
  Receive Date: 20040426
  Receipt Date: 20040416
  Transmission Date: 20050107
  Serious: Yes (Disabling, Other)
  Sender: FDA-Public Use
  Company Number: ES-JNJFOC-20040403947

PATIENT
  Age: 74 Year
  Sex: Male
  Weight: 67 kg

DRUGS (4)
  1. HALDOL [Suspect]
     Dosage: 15 DOSE (S), IN 1 DAY, ORAL
     Route: 048
  2. DISGREN (TRIFLUSAL) [Concomitant]
  3. PROPRANOLOL [Concomitant]
  4. LORAZEPAM [Concomitant]

REACTIONS (4)
  - DELIRIUM [None]
  - DRUG INEFFECTIVE [None]
  - EXTRAPYRAMIDAL DISORDER [None]
  - RESTLESSNESS [None]
